FAERS Safety Report 10065165 (Version 2)
Quarter: 2014Q2

REPORT INFORMATION
  Report Type: Spontaneous
  Country: GR (occurrence: GR)
  Receive Date: 20140408
  Receipt Date: 20140530
  Transmission Date: 20141212
  Serious: Yes (Death, Hospitalization)
  Sender: FDA-Public Use
  Company Number: GR-B.I. PHARMACEUTICALS,INC./RIDGEFIELD-2014-BI-15771GB

PATIENT
  Age: 90 Year
  Sex: Female

DRUGS (5)
  1. PRADAXA [Suspect]
     Indication: ATRIAL FIBRILLATION
     Dosage: 220 MG
     Route: 048
     Dates: start: 20140228, end: 20140328
  2. KARVEA [Concomitant]
     Indication: HYPERTENSION
     Route: 065
  3. RYTHMONORM [Concomitant]
     Indication: ARRHYTHMIA
     Route: 065
  4. SOTALOL [Concomitant]
     Indication: ARRHYTHMIA
     Route: 065
  5. OLARTAN [Concomitant]
     Indication: HYPERTENSION
     Route: 065

REACTIONS (2)
  - Haemorrhagic stroke [Fatal]
  - Cerebral ischaemia [Fatal]
